FAERS Safety Report 12400881 (Version 2)
Quarter: 2016Q2

REPORT INFORMATION
  Report Type: Spontaneous
  Country: US (occurrence: US)
  Receive Date: 20160525
  Receipt Date: 20160525
  Transmission Date: 20160815
  Serious: No
  Sender: FDA-Public Use
  Company Number: US-SA-2015SA102221

PATIENT
  Age: 58 Year
  Sex: Female

DRUGS (2)
  1. SOLOSTAR [Concomitant]
     Active Substance: DEVICE
     Dates: start: 2013
  2. LANTUS SOLOSTAR [Suspect]
     Active Substance: INSULIN GLARGINE
     Indication: TYPE 2 DIABETES MELLITUS
     Dosage: IT WAS REPORTED THE PATIENT WAS PREVIOUSLY ON 60 IU DOSE:60 UNIT(S)
     Route: 065
     Dates: start: 2013

REACTIONS (2)
  - Alcohol test false positive [Unknown]
  - Drug administration error [Unknown]

NARRATIVE: CASE EVENT DATE: 2013
